FAERS Safety Report 12449352 (Version 3)
Quarter: 2016Q3

REPORT INFORMATION
  Report Type: Spontaneous
  Country: JP (occurrence: JP)
  Receive Date: 20160608
  Receipt Date: 20160817
  Transmission Date: 20161109
  Serious: Yes (Death, Other)
  Sender: FDA-Public Use
  Company Number: JP-GILEAD-2016-0216739

PATIENT
  Age: 70 Year
  Sex: Female
  Weight: 36 kg

DRUGS (8)
  1. URSO [Concomitant]
     Active Substance: URSODIOL
  2. DENOTAS [Concomitant]
     Active Substance: CALCIUM CARBONATE\CHOLECALCIFEROL\MAGNESIUM CARBONATE
  3. LAXOBERON [Concomitant]
     Active Substance: SODIUM PICOSULFATE
  4. HARVONI [Suspect]
     Active Substance: LEDIPASVIR\SOFOSBUVIR
     Indication: HEPATITIS C
     Dosage: 1 DF, QD
     Route: 048
     Dates: start: 20160308, end: 20160508
  5. MIYA-BM [Concomitant]
     Active Substance: CLOSTRIDIUM BUTYRICUM SPORES STRAIN M-55
  6. AMITIZA [Concomitant]
     Active Substance: LUBIPROSTONE
  7. BLOPRESS [Concomitant]
     Active Substance: CANDESARTAN CILEXETIL
  8. ASPARA POTASSIUM [Concomitant]
     Active Substance: POTASSIUM ASPARTATE

REACTIONS (3)
  - Arrhythmia [Fatal]
  - Loss of consciousness [Unknown]
  - Cardio-respiratory arrest [Unknown]

NARRATIVE: CASE EVENT DATE: 20160508
